FAERS Safety Report 11528917 (Version 1)
Quarter: 2015Q3

REPORT INFORMATION
  Report Type: Spontaneous
  Country: US (occurrence: US)
  Receive Date: 20150921
  Receipt Date: 20150921
  Transmission Date: 20151125
  Serious: No
  Sender: FDA-Public Use
  Company Number: US-PFIZER INC-2015315648

PATIENT
  Sex: Male

DRUGS (2)
  1. CHANTIX [Suspect]
     Active Substance: VARENICLINE TARTRATE
     Dosage: 2 DF, UNK
     Dates: start: 20150917
  2. CHANTIX [Suspect]
     Active Substance: VARENICLINE TARTRATE
     Dosage: UNK
     Dates: start: 20150914, end: 20150916

REACTIONS (2)
  - Abnormal dreams [Unknown]
  - Insomnia [Unknown]

NARRATIVE: CASE EVENT DATE: 20150917
